FAERS Safety Report 18422030 (Version 2)
Quarter: 2020Q4

REPORT INFORMATION
  Report Type: Report from Study
  Country: CA (occurrence: CA)
  Receive Date: 20201023
  Receipt Date: 20201125
  Transmission Date: 20210114
  Serious: Yes (Hospitalization, Other)
  Sender: FDA-Public Use
  Company Number: CA-JNJFOC-20200742938

PATIENT
  Age: 26 Year
  Sex: Female
  Weight: 73.5 kg

DRUGS (2)
  1. REMICADE [Suspect]
     Active Substance: INFLIXIMAB
     Dosage: DOSE: 10 MG/KG
     Route: 042
  2. REMICADE [Suspect]
     Active Substance: INFLIXIMAB
     Indication: CROHN^S DISEASE
     Dosage: DOSE: 10 MG/KG
     Route: 042
     Dates: start: 20190913

REACTIONS (4)
  - Exposure during pregnancy [Not Recovered/Not Resolved]
  - Nephrolithiasis [Recovered/Resolved]
  - Vomiting [Unknown]
  - Beta haemolytic streptococcal infection [Recovered/Resolved]

NARRATIVE: CASE EVENT DATE: 2020
